FAERS Safety Report 23303938 (Version 1)
Quarter: 2023Q4

REPORT INFORMATION
  Report Type: Spontaneous
  Country: US (occurrence: US)
  Receive Date: 20231215
  Receipt Date: 20231215
  Transmission Date: 20240109
  Serious: Yes (Other)
  Sender: FDA-Public Use
  Company Number: US-PFIZER INC-PV202300190634

PATIENT
  Age: 76 Year
  Sex: Male
  Weight: 82.55 kg

DRUGS (2)
  1. IBRANCE [Suspect]
     Active Substance: PALBOCICLIB
     Indication: Liposarcoma
     Dosage: 125 MG, CYCLIC (125 MG TABLET, 1 TABLET DAILY FOR 21 DAYS, OFF FOR 7 DAYS)
     Route: 048
  2. IBRANCE [Suspect]
     Active Substance: PALBOCICLIB
     Dosage: 100 MG, DAILY (TAKE 1 TABLET BY MOUTH DAILY. ADMINISTER WITH OR WITHOUT FOOD)
     Route: 048

REACTIONS (2)
  - Neutropenia [Not Recovered/Not Resolved]
  - Off label use [Unknown]
